FAERS Safety Report 12343393 (Version 1)
Quarter: 2016Q2

REPORT INFORMATION
  Report Type: Spontaneous
  Country: US (occurrence: US)
  Receive Date: 20160506
  Receipt Date: 20160506
  Transmission Date: 20160815
  Serious: Yes (Disabling)
  Sender: FDA-Public Use
  Company Number: US-GLAXOSMITHKLINE-US2016GSK062935

PATIENT
  Sex: Female
  Weight: 61.23 kg

DRUGS (1)
  1. TRANSDERM SCOP [Suspect]
     Active Substance: SCOPOLAMINE
     Indication: MOTION SICKNESS
     Dosage: 1.5 MG, UNK, EVERY 72 HOURS
     Route: 061
     Dates: start: 20160410, end: 20160424

REACTIONS (3)
  - Vertigo [Recovering/Resolving]
  - Headache [Unknown]
  - Nausea [Recovering/Resolving]
